FAERS Safety Report 9589703 (Version 1)
Quarter: 2013Q4

REPORT INFORMATION
  Report Type: Spontaneous
  Country: US (occurrence: US)
  Receive Date: 20131003
  Receipt Date: 20131003
  Transmission Date: 20140711
  Serious: No
  Sender: FDA-Public Use
  Company Number: US-AMGEN-USASP2012072395

PATIENT
  Age: 47 Year
  Sex: Female
  Weight: 77.1 kg

DRUGS (8)
  1. ENBREL [Suspect]
     Indication: RHEUMATOID ARTHRITIS
     Dosage: 50 UNK, WEEKLY
     Route: 058
  2. RELAFEN [Concomitant]
     Dosage: 750 MG, UNK
  3. METHOTREXATE [Concomitant]
     Dosage: 2.5 MG, UNK
  4. VITAMIN D3 [Concomitant]
     Dosage: 2000 UNIT, UNK
  5. SOY ISOFLAVONE [Concomitant]
     Dosage: 50 MG, UNK
  6. EVEPREM OIL [Concomitant]
     Dosage: 1000 MG, UNK
  7. FISH OIL [Concomitant]
     Dosage: UNK
  8. GREEN S [Concomitant]
     Dosage: UNK

REACTIONS (1)
  - Injection site reaction [Unknown]
